FAERS Safety Report 20710527 (Version 2)
Quarter: 2022Q2

REPORT INFORMATION
  Report Type: Report from Study
  Country: JP (occurrence: JP)
  Receive Date: 20220414
  Receipt Date: 20220628
  Transmission Date: 20220720
  Serious: Yes (Hospitalization)
  Sender: FDA-Public Use
  Company Number: JP-GILEAD-2022-0576148

PATIENT
  Age: 0 Year
  Sex: Female

DRUGS (12)
  1. EMTRICITABINE\TENOFOVIR DISOPROXIL FUMARATE [Suspect]
     Active Substance: EMTRICITABINE\TENOFOVIR DISOPROXIL FUMARATE
     Indication: HIV infection
     Dosage: 1 DOSAGE FORM, QD
     Route: 050
     Dates: start: 20191004, end: 20200404
  2. EMTRICITABINE\TENOFOVIR [Suspect]
     Active Substance: EMTRICITABINE\TENOFOVIR
     Indication: HIV infection
     Dosage: 1 DOSAGE FORM, QD
     Route: 050
     Dates: start: 20200405, end: 20200622
  3. AZTREONAM [Suspect]
     Active Substance: AZTREONAM
     Indication: Product used for unknown indication
     Dosage: 3 MG, BID
     Route: 042
     Dates: start: 20200622, end: 20200623
  4. ZIDOVUDINE [Suspect]
     Active Substance: ZIDOVUDINE
     Indication: Product used for unknown indication
     Dosage: 4 MG, BID
     Route: 048
     Dates: start: 20200624, end: 20200719
  5. ISENTRESS [Concomitant]
     Active Substance: RALTEGRAVIR POTASSIUM
     Indication: HIV infection
     Dosage: 400 MG, BID
     Route: 050
     Dates: start: 20191004, end: 20200622
  6. MENATETRENONE [Concomitant]
     Active Substance: MENATETRENONE
     Dosage: 1 ML, QD
     Dates: start: 20200701, end: 20200701
  7. MENATETRENONE [Concomitant]
     Active Substance: MENATETRENONE
     Dosage: 1 ML, QD
     Dates: start: 20200720, end: 20200720
  8. FERROUS FUMARATE [Concomitant]
     Active Substance: FERROUS FUMARATE
     Indication: Anaemia prophylaxis
     Dosage: 100 MG, QD
     Route: 050
     Dates: start: 20200507, end: 20200609
  9. FENTANYL CITRATE [Concomitant]
     Active Substance: FENTANYL CITRATE
     Indication: Anaesthesia procedure
     Dosage: 0.1 MG, QD
     Route: 050
     Dates: start: 20200622, end: 20200622
  10. SODIUM FERROUS CITRATE [Concomitant]
     Active Substance: SODIUM FERROUS CITRATE
     Indication: Anaemia prophylaxis
     Dosage: 50 MG, BID
     Route: 050
     Dates: start: 2020, end: 20200506
  11. SODIUM FERROUS CITRATE [Concomitant]
     Active Substance: SODIUM FERROUS CITRATE
     Indication: Anaemia
     Dosage: 50 MG, BID
     Route: 050
     Dates: start: 20200610, end: 20200622
  12. SODIUM FERROUS CITRATE [Concomitant]
     Active Substance: SODIUM FERROUS CITRATE
     Dosage: 15 MG, QD
     Route: 048
     Dates: start: 20200707, end: 20200805

REACTIONS (3)
  - Transient tachypnoea of the newborn [Recovered/Resolved]
  - Anaemia [Recovered/Resolved]
  - Foetal exposure during pregnancy [Recovered/Resolved]

NARRATIVE: CASE EVENT DATE: 20191004
